FAERS Safety Report 19232066 (Version 2)
Quarter: 2021Q3

REPORT INFORMATION
  Report Type: Spontaneous
  Country: GB (occurrence: GB)
  Receive Date: 20210507
  Receipt Date: 20210714
  Transmission Date: 20211014
  Serious: Yes (Other)
  Sender: FDA-Public Use
  Company Number: GB-TORRENT-00025584

PATIENT
  Age: 47 Year
  Sex: Female
  Weight: 61 kg

DRUGS (4)
  1. FLUTIFORM [Concomitant]
     Active Substance: FLUTICASONE PROPIONATE\FORMOTEROL FUMARATE
     Indication: PRODUCT USED FOR UNKNOWN INDICATION
     Dosage: UNKNOWN
     Route: 055
  2. FERROUS FUMARATE [Concomitant]
     Active Substance: FERROUS FUMARATE
     Indication: PRODUCT USED FOR UNKNOWN INDICATION
     Dosage: UNKNOWN
  3. OMEPRAZOLE. [Concomitant]
     Active Substance: OMEPRAZOLE
     Indication: PRODUCT USED FOR UNKNOWN INDICATION
     Dosage: UNKNOWN
     Dates: end: 202012
  4. MONTELUKAST [Suspect]
     Active Substance: MONTELUKAST SODIUM
     Indication: PRODUCTIVE COUGH
     Dosage: IN EVENING
     Route: 048
     Dates: start: 20201212, end: 20201216

REACTIONS (5)
  - Nausea [Unknown]
  - Fatigue [Unknown]
  - Abnormal dreams [Unknown]
  - Abdominal pain upper [Unknown]
  - Nightmare [Unknown]

NARRATIVE: CASE EVENT DATE: 20201214
